FAERS Safety Report 22540142 (Version 1)
Quarter: 2023Q2

REPORT INFORMATION
  Report Type: Spontaneous
  Country: US (occurrence: US)
  Receive Date: 20230609
  Receipt Date: 20230609
  Transmission Date: 20230722
  Serious: No
  Sender: FDA-Public Use
  Company Number: US-IMMUNOGEN, INC.-US-IMGN-23-00188

PATIENT

DRUGS (1)
  1. ELAHERE [Suspect]
     Active Substance: MIRVETUXIMAB SORAVTANSINE-GYNX
     Indication: Product used for unknown indication
     Dosage: 476 MILLIGRAM, CYCLIC, EVERY 21 DAYS
     Route: 058
     Dates: end: 20230406

REACTIONS (2)
  - Disease progression [Unknown]
  - Incorrect route of product administration [Unknown]
